FAERS Safety Report 7817753-2 (Version None)
Quarter: 2011Q4

REPORT INFORMATION
  Report Type: 
  Country: None (occurrence: None)
  Receive Date: 20111017
  Receipt Date: 20111010
  Transmission Date: 20120403
  Serious: Yes (Other)
  Sender: FDA-Public Use
  Company Number: FR-UCBSA-043092

PATIENT
  Sex: Male
  Weight: 3.77 kg

DRUGS (1)
  1. KEPPRA [Suspect]
     Indication: IDIOPATHIC GENERALISED EPILEPSY
     Route: 064
     Dates: start: 20101101

REACTIONS (3)
  - EXPOSURE DURING BREAST FEEDING [None]
  - FOETAL DISTRESS SYNDROME [None]
  - MATERNAL EXPOSURE DURING PREGNANCY [None]
